FAERS Safety Report 4367077-3 (Version None)
Quarter: 2004Q2

REPORT INFORMATION
  Report Type: 
  Country: None (occurrence: None)
  Receive Date: 20040528
  Receipt Date: 20020516
  Transmission Date: 20050107
  Serious: Yes (Hospitalization, Disabling, Other)
  Sender: FDA-Public Use
  Company Number: US-MERCK-0205USA02064

PATIENT
  Age: 36 Year
  Sex: Male
  Weight: 70 kg

DRUGS (1)
  1. VIOXX [Suspect]
     Route: 048
     Dates: start: 20000401

REACTIONS (7)
  - ARTHROPATHY [None]
  - CEREBROVASCULAR ACCIDENT [None]
  - COMPLICATED MIGRAINE [None]
  - CONVULSION [None]
  - HYPERCHOLESTEROLAEMIA [None]
  - MIGRAINE [None]
  - TREMOR [None]
